FAERS Safety Report 4713959-X (Version None)
Quarter: 2005Q3

REPORT INFORMATION
  Report Type: 
  Country: None (occurrence: None)
  Receive Date: 20050712
  Receipt Date: 20050624
  Transmission Date: 20060218
  Serious: Yes (Hospitalization)
  Sender: FDA-Public Use
  Company Number: EWC050644351

PATIENT
  Age: 38 Year
  Sex: Female
  Weight: 74 kg

DRUGS (5)
  1. ZYPREXA [Suspect]
     Indication: BIPOLAR DISORDER
     Dosage: 25 MG/1 DAY
     Dates: start: 20041012, end: 20041213
  2. VALPROATE SODIUM [Concomitant]
  3. CITALOPRAM HYDROBROMIDE [Concomitant]
  4. LITHIUM CARBONATE [Concomitant]
  5. LORAZEPAM [Concomitant]

REACTIONS (7)
  - ABNORMAL BEHAVIOUR [None]
  - AMNESIA [None]
  - DELIRIUM [None]
  - DISORIENTATION [None]
  - ERYTHEMA [None]
  - PRESCRIBED OVERDOSE [None]
  - SEROTONIN SYNDROME [None]
